FAERS Safety Report 24248134 (Version 1)
Quarter: 2024Q3

REPORT INFORMATION
  Report Type: Spontaneous
  Country: US (occurrence: US)
  Receive Date: 20240826
  Receipt Date: 20240826
  Transmission Date: 20241016
  Serious: No
  Sender: AMGEN
  Company Number: US-AMGEN-USASP2024166323

PATIENT
  Age: 68 Year
  Sex: Female

DRUGS (3)
  1. PROLIA [Suspect]
     Active Substance: DENOSUMAB
     Indication: Osteoporosis
     Dosage: 60 MILLIGRAM
     Route: 058
     Dates: start: 20240711, end: 20240820
  2. GABAPENTIN [Concomitant]
     Active Substance: GABAPENTIN
  3. TOPAMAX [Concomitant]
     Active Substance: TOPIRAMATE

REACTIONS (3)
  - Diarrhoea [Unknown]
  - Weight decreased [Unknown]
  - Flatulence [Unknown]

NARRATIVE: CASE EVENT DATE: 20240101
